FAERS Safety Report 10062171 (Version 2)
Quarter: 2014Q2

REPORT INFORMATION
  Report Type: Spontaneous
  Country: US (occurrence: US)
  Receive Date: 20140407
  Receipt Date: 20140421
  Transmission Date: 20141212
  Serious: Yes (Other)
  Sender: FDA-Public Use
  Company Number: US-PFIZER INC-2014091905

PATIENT
  Age: 68 Year
  Sex: Female
  Weight: 73.02 kg

DRUGS (10)
  1. METFORMIN HCL [Suspect]
     Indication: DIABETES MELLITUS
     Dosage: 500 MG, 1X/DAY
     Dates: start: 2013
  2. METFORMIN HCL [Suspect]
     Dosage: UNK, 2X/DAY
  3. CALAN SR [Suspect]
     Indication: HYPERTENSION
     Dosage: 150 MG, 1X/DAY
     Dates: start: 1990
  4. ADVAIR [Concomitant]
     Indication: ASTHMA
     Dosage: 250/50MG, 1X/DAY
     Dates: start: 1990
  5. SINGULAIR [Concomitant]
     Indication: CHRONIC OBSTRUCTIVE PULMONARY DISEASE
     Dosage: 10 MG, 1X/DAY
     Dates: start: 2008
  6. ALLEGRA [Concomitant]
     Indication: ASTHMA
     Dosage: 180 MG, 1X/DAY
  7. TYLENOL [Concomitant]
     Indication: OSTEOARTHRITIS
     Dosage: 1300 MG, 1X/DAY
     Dates: start: 2010
  8. OMEPRAZOLE [Concomitant]
     Dosage: 40 MG, 1X/DAY
     Dates: start: 1980
  9. WELCHOL [Concomitant]
     Indication: IRRITABLE BOWEL SYNDROME
     Dosage: 625 MG, 1X/DAY
     Dates: start: 1990
  10. HYDROCHLOROTHIAZIDE/LOSARTAN [Concomitant]
     Indication: HYPERTENSION
     Dosage: 100/25MG, 1X/DAY
     Dates: start: 1990

REACTIONS (6)
  - Breast cancer female [Not Recovered/Not Resolved]
  - Hypotension [Unknown]
  - Scar [Unknown]
  - Wrong technique in drug usage process [Unknown]
  - Drug administration error [Unknown]
  - Incorrect dose administered [Unknown]
